FAERS Safety Report 19871560 (Version 2)
Quarter: 2021Q4

REPORT INFORMATION
  Report Type: Spontaneous
  Country: US (occurrence: US)
  Receive Date: 20210923
  Receipt Date: 20211105
  Transmission Date: 20220303
  Serious: No
  Sender: FDA-Public Use
  Company Number: US-SA-SAC20210921001264

PATIENT
  Age: 37 Year
  Sex: Male

DRUGS (9)
  1. AUBAGIO [Suspect]
     Active Substance: TERIFLUNOMIDE
     Indication: Multiple sclerosis
     Dosage: 1 DF, QD
     Route: 048
     Dates: start: 20190802
  2. AMBIEN [Concomitant]
     Active Substance: ZOLPIDEM TARTRATE
  3. KEPPRA [Concomitant]
     Active Substance: LEVETIRACETAM
  4. LITHIUM [Concomitant]
     Active Substance: LITHIUM
  5. METOPROLOL [Concomitant]
     Active Substance: METOPROLOL
  6. RANITIDINE [Concomitant]
     Active Substance: RANITIDINE
  7. SAPHRIS [Concomitant]
     Active Substance: ASENAPINE MALEATE
  8. AMITRIPTYLINE [Concomitant]
     Active Substance: AMITRIPTYLINE
  9. LITHIUM CARBONATE [Concomitant]
     Active Substance: LITHIUM CARBONATE

REACTIONS (1)
  - Product dose omission issue [Unknown]
